FAERS Safety Report 11812753 (Version 2)
Quarter: 2018Q1

REPORT INFORMATION
  Report Type: Spontaneous
  Country: JP (occurrence: JP)
  Receive Date: 20151209
  Receipt Date: 20180208
  Transmission Date: 20180508
  Serious: Yes (Hospitalization, Other)
  Sender: FDA-Public Use
  Company Number: JP-SUN PHARMACEUTICAL INDUSTRIES LTD-2015RR-106790

PATIENT

DRUGS (3)
  1. ASPIRIN. [Interacting]
     Active Substance: ASPIRIN
     Indication: ATRIAL FIBRILLATION
     Route: 065
  2. WARFARIN [Suspect]
     Active Substance: WARFARIN
     Indication: ATRIAL FIBRILLATION
     Route: 065
  3. AMOXICILLIN/CLAVULANIC ACID [Interacting]
     Active Substance: AMOXICILLIN\CLAVULANIC ACID
     Indication: JOINT SWELLING
     Route: 065

REACTIONS (3)
  - Pharyngeal haematoma [Recovered/Resolved]
  - Drug interaction [Recovered/Resolved]
  - International normalised ratio increased [Recovered/Resolved]
